FAERS Safety Report 9308208 (Version 2)
Quarter: 2013Q2

REPORT INFORMATION
  Report Type: Spontaneous
  Country: US (occurrence: US)
  Receive Date: 20130524
  Receipt Date: 20130604
  Transmission Date: 20140414
  Serious: No
  Sender: FDA-Public Use
  Company Number: US-009507513-1305USA014150

PATIENT
  Age: 38 Year
  Sex: Female
  Weight: 170.52 kg

DRUGS (1)
  1. NEXPLANON [Suspect]
     Indication: CONTRACEPTION
     Dosage: UNK
     Route: 059
     Dates: start: 20130409, end: 20130409

REACTIONS (2)
  - Implant site irritation [Unknown]
  - Device expulsion [Unknown]
